FAERS Safety Report 13002485 (Version 1)
Quarter: 2016Q4

REPORT INFORMATION
  Report Type: Spontaneous
  Country: GB (occurrence: GB)
  Receive Date: 20161206
  Receipt Date: 20161206
  Transmission Date: 20170207
  Serious: Yes (Other)
  Sender: FDA-Public Use
  Company Number: GB-JNJFOC-20161121936

PATIENT
  Age: 93 Year
  Sex: Female
  Weight: 50 kg

DRUGS (3)
  1. SPORANOX [Suspect]
     Active Substance: ITRACONAZOLE
     Indication: EYE INFECTION
     Dosage: FOR NINE DAYS.
     Route: 048
  2. AMPHOTERICIN [Concomitant]
     Active Substance: AMPHOTERICIN B
     Indication: EYE INFECTION
     Dosage: 6 DROPS PER DAY.
     Route: 047
  3. SPORANOX [Suspect]
     Active Substance: ITRACONAZOLE
     Indication: EYE INFECTION
     Dosage: FOR EIGHT DAYS.
     Route: 048

REACTIONS (6)
  - Neuropathy peripheral [Not Recovered/Not Resolved]
  - Sensory loss [Not Recovered/Not Resolved]
  - Decreased appetite [Recovered/Resolved]
  - Product use issue [Unknown]
  - Off label use [Unknown]
  - Nausea [Recovered/Resolved]
